FAERS Safety Report 17025328 (Version 1)
Quarter: 2019Q4

REPORT INFORMATION
  Report Type: Spontaneous
  Country: US (occurrence: US)
  Receive Date: 20191009
  Receipt Date: 20191009
  Transmission Date: 20200122
  Serious: No
  Sender: FDA-Public Use
  Company Number: None

PATIENT
  Age: 51 Year
  Sex: Female

DRUGS (1)
  1. ENBREL [Suspect]
     Active Substance: ETANERCEPT
     Indication: RHEUMATOID ARTHRITIS
     Dosage: ?          OTHER FREQUENCY:UNKNOWN;?
     Route: 058
     Dates: start: 201903

REACTIONS (5)
  - Pain [None]
  - Mobility decreased [None]
  - Fine motor skill dysfunction [None]
  - Gait disturbance [None]
  - Joint range of motion decreased [None]

NARRATIVE: CASE EVENT DATE: 20191009
